FAERS Safety Report 11701594 (Version 1)
Quarter: 2015Q4

REPORT INFORMATION
  Report Type: Spontaneous
  Country: US (occurrence: US)
  Receive Date: 20151105
  Receipt Date: 20151105
  Transmission Date: 20160304
  Serious: No
  Sender: FDA-Public Use
  Company Number: US-MALLINCKRODT-T201500852

PATIENT
  Age: 46 Year
  Sex: Female
  Weight: 72 kg

DRUGS (4)
  1. OXYCODONE [Concomitant]
     Active Substance: OXYCODONE
     Dosage: 10 MG, PRN
  2. FENTANYL TRANSDERMAL SYSTEM [Suspect]
     Active Substance: FENTANYL
     Indication: NEURALGIA
     Dosage: 25 UG/HR, ONE PATCH Q72HRS
     Route: 062
     Dates: start: 20150116, end: 20150116
  3. AMOXICILLIN. [Concomitant]
     Active Substance: AMOXICILLIN
     Indication: UPPER RESPIRATORY TRACT INFECTION
  4. GABAPENTIN. [Concomitant]
     Active Substance: GABAPENTIN

REACTIONS (2)
  - Dyspnoea [Recovered/Resolved]
  - Drug effect increased [Recovered/Resolved]

NARRATIVE: CASE EVENT DATE: 20150116
